FAERS Safety Report 6543699-6 (Version None)
Quarter: 2010Q1

REPORT INFORMATION
  Report Type: 
  Country: None (occurrence: None)
  Receive Date: 20100120
  Receipt Date: 20100112
  Transmission Date: 20100710
  Serious: Yes (Other)
  Sender: FDA-Public Use
  Company Number: US-PFIZER INC-2010004456

PATIENT
  Age: 45 Year
  Sex: Male

DRUGS (1)
  1. DILANTIN-125 [Suspect]

REACTIONS (1)
  - CONVULSION [None]
